FAERS Safety Report 5255395-6 (Version None)
Quarter: 2007Q1

REPORT INFORMATION
  Report Type: 
  Country: None (occurrence: None)
  Receive Date: 20070305
  Receipt Date: 20070219
  Transmission Date: 20070707
  Serious: Yes (Disabling, Other)
  Sender: FDA-Public Use
  Company Number: PHRM2007FR00761

PATIENT
  Age: 58 Year
  Sex: Male
  Weight: 102 kg

DRUGS (2)
  1. LESCOL [Suspect]
     Indication: HYPERCHOLESTEROLAEMIA
     Dosage: 80 MG, QD
     Route: 048
     Dates: start: 19980101, end: 20040101
  2. LESCOL [Suspect]
     Dosage: 80 MG, QD
     Route: 048
     Dates: start: 20050101, end: 20061101

REACTIONS (3)
  - LIGAMENT INJURY [None]
  - LIGAMENT OPERATION [None]
  - TENDONITIS [None]
